FAERS Safety Report 11723062 (Version 2)
Quarter: 2016Q1

REPORT INFORMATION
  Report Type: Spontaneous
  Country: DE (occurrence: DE)
  Receive Date: 20151111
  Receipt Date: 20160329
  Transmission Date: 20160525
  Serious: Yes (Other)
  Sender: FDA-Public Use
  Company Number: CHPA2015DE013263

PATIENT
  Age: 29 Year
  Sex: Female

DRUGS (4)
  1. OTRIVEN [Suspect]
     Active Substance: XYLOMETAZOLINE HYDROCHLORIDE
     Indication: NASAL DECONGESTION THERAPY
     Dosage: 1 TO 2 SPRAY PUFFS PER NOSTRIL APPROXIMATELY EVERY 2 HOURS
     Route: 045
     Dates: start: 2010
  2. OTRIVEN [Suspect]
     Active Substance: XYLOMETAZOLINE HYDROCHLORIDE
     Indication: NASAL DECONGESTION THERAPY
     Dosage: 1 TO 2 SPRAY PUFFS PER NOSTRIL APPROXIMATELY EVERY 2 HOURS
     Route: 045
     Dates: start: 2010
  3. OTRIVEN [Suspect]
     Active Substance: XYLOMETAZOLINE HYDROCHLORIDE
     Indication: HYPERSENSITIVITY
  4. OTRIVEN [Suspect]
     Active Substance: XYLOMETAZOLINE HYDROCHLORIDE
     Indication: HYPERSENSITIVITY

REACTIONS (4)
  - Maternal exposure during pregnancy [Unknown]
  - Drug dependence [Unknown]
  - Incorrect dose administered [Unknown]
  - Incorrect drug administration duration [Unknown]
